FAERS Safety Report 7622480-0 (Version None)
Quarter: 2011Q3

REPORT INFORMATION
  Report Type: 
  Country: None (occurrence: None)
  Receive Date: 20110712
  Receipt Date: 20110701
  Transmission Date: 20111222
  Serious: Yes (Other)
  Sender: FDA-Public Use
  Company Number: 2011SP004427

PATIENT
  Age: 59 Year
  Sex: Female
  Weight: 52 kg

DRUGS (4)
  1. PEG-INTRON [Suspect]
     Indication: HEPATITIS C
     Dosage: 80 MG;SC
     Route: 058
     Dates: start: 20110101, end: 20110501
  2. OMEPRAZOLE [Concomitant]
  3. DYPIRONE [Concomitant]
  4. RIBAVIRINE (OTHER MFR) (RIBAVIRIN /00816701/) [Suspect]
     Indication: HEPATITIS C
     Dosage: PO
     Route: 048
     Dates: start: 20110101, end: 20110501

REACTIONS (15)
  - CHILLS [None]
  - DERMATITIS [None]
  - HYPOPHAGIA [None]
  - ALOPECIA [None]
  - PYREXIA [None]
  - EYE DISORDER [None]
  - SKIN DISORDER [None]
  - PRURITUS [None]
  - RASH [None]
  - NAUSEA [None]
  - SWELLING FACE [None]
  - DYSGEUSIA [None]
  - HEADACHE [None]
  - PAIN [None]
  - WEIGHT DECREASED [None]
